FAERS Safety Report 13250150 (Version 4)
Quarter: 2017Q4

REPORT INFORMATION
  Report Type: Spontaneous
  Country: US (occurrence: US)
  Receive Date: 20170218
  Receipt Date: 20171109
  Transmission Date: 20180320
  Serious: No
  Sender: FDA-Public Use
  Company Number: US-TEVA-727585ACC

PATIENT
  Age: 47 Year
  Sex: Female

DRUGS (8)
  1. MEDROXYPROGESTERONE [Concomitant]
     Active Substance: MEDROXYPROGESTERONE
  2. XANAX [Concomitant]
     Active Substance: ALPRAZOLAM
  3. NORCO [Concomitant]
     Active Substance: ACETAMINOPHEN\HYDROCODONE BITARTRATE
  4. VENTOLIN [Concomitant]
     Active Substance: ALBUTEROL SULFATE
  5. ESTRADIOL. [Concomitant]
     Active Substance: ESTRADIOL
  6. EFFEXOR XR [Concomitant]
     Active Substance: VENLAFAXINE HYDROCHLORIDE
  7. COPAXONE [Suspect]
     Active Substance: GLATIRAMER ACETATE
     Indication: MULTIPLE SCLEROSIS
     Route: 058
     Dates: start: 20161122
  8. VICODIN [Concomitant]
     Active Substance: ACETAMINOPHEN\HYDROCODONE BITARTRATE

REACTIONS (7)
  - Headache [Not Recovered/Not Resolved]
  - Gait disturbance [Unknown]
  - Fall [Not Recovered/Not Resolved]
  - Fatigue [Unknown]
  - Balance disorder [Not Recovered/Not Resolved]
  - Injection site reaction [Unknown]
  - Pain in extremity [Not Recovered/Not Resolved]

NARRATIVE: CASE EVENT DATE: 20161201
